APPROVED DRUG PRODUCT: LORATADINE
Active Ingredient: LORATADINE
Strength: 10MG
Dosage Form/Route: CAPSULE;ORAL
Application: A211926 | Product #001
Applicant: ONESOURCE SPECIALTY PTE LTD
Approved: Jan 15, 2020 | RLD: No | RS: No | Type: DISCN